FAERS Safety Report 23350119 (Version 1)
Quarter: 2023Q4

REPORT INFORMATION
  Report Type: Other
  Country: CN (occurrence: None)
  Receive Date: 20231229
  Receipt Date: 20231229
  Transmission Date: 20240110
  Serious: Yes (Other)
  Sender: FDA-Public Use
  Company Number: CN-ROCHE-3480512

PATIENT
  Sex: Female

DRUGS (9)
  1. TRASTUZUMAB [Suspect]
     Active Substance: TRASTUZUMAB
     Indication: HER2 positive breast cancer
     Dosage: FOR 21 DAYS
     Route: 042
  2. TRASTUZUMAB [Suspect]
     Active Substance: TRASTUZUMAB
     Dosage: FOR 21 DAYS
     Route: 042
  3. PYROTINIB [Suspect]
     Active Substance: PYROTINIB
     Indication: HER2 positive breast cancer
     Dosage: 8 CYCLES
     Route: 048
  4. PYROTINIB [Suspect]
     Active Substance: PYROTINIB
     Dosage: 8 CYCLES
     Route: 048
  5. PYROTINIB [Suspect]
     Active Substance: PYROTINIB
     Dosage: 8 CYCLES
     Route: 048
  6. EPIRUBICIN [Suspect]
     Active Substance: EPIRUBICIN
     Indication: HER2 positive breast cancer
     Dosage: 4 CYCLES
     Route: 042
  7. CYCLOPHOSPHAMIDE [Suspect]
     Active Substance: CYCLOPHOSPHAMIDE
     Indication: HER2 positive breast cancer
     Route: 042
  8. PACLITAXEL [Suspect]
     Active Substance: PACLITAXEL
     Indication: HER2 positive breast cancer
     Route: 042
  9. DOCETAXEL [Suspect]
     Active Substance: DOCETAXEL\DOCETAXEL ANHYDROUS
     Indication: HER2 positive breast cancer
     Route: 042

REACTIONS (16)
  - Diarrhoea [Unknown]
  - Hypokalaemia [Unknown]
  - Anaemia [Unknown]
  - White blood cell count decreased [Unknown]
  - Neutropenia [Unknown]
  - Alanine aminotransferase increased [Unknown]
  - Aspartate aminotransferase increased [Unknown]
  - Vomiting [Unknown]
  - Rash [Unknown]
  - Palmar-plantar erythrodysaesthesia syndrome [Unknown]
  - Stomatitis [Unknown]
  - Blood urea increased [Unknown]
  - Nausea [Unknown]
  - Asthenia [Unknown]
  - Pigmentation disorder [Unknown]
  - Alopecia [Unknown]
